FAERS Safety Report 8482294-9 (Version None)
Quarter: 2012Q3

REPORT INFORMATION
  Report Type: 
  Country: None (occurrence: None)
  Receive Date: 20120702
  Receipt Date: 20120628
  Transmission Date: 20120928
  Serious: No
  Sender: FDA-Public Use
  Company Number: US-TEVA-346034USA

PATIENT
  Sex: Female
  Weight: 72.64 kg

DRUGS (7)
  1. ANAFRANIL [Concomitant]
     Indication: DEPRESSION
     Dates: start: 19960101
  2. LAMICTAL [Concomitant]
     Indication: BIPOLAR DISORDER
     Dates: start: 19960101
  3. GEODON [Concomitant]
     Indication: BIPOLAR DISORDER
     Dates: start: 19960101
  4. DIAZEPAM [Concomitant]
     Indication: ANXIETY
     Dates: start: 19960101
  5. TRAZODONE HCL [Concomitant]
     Indication: DEPRESSION
     Dates: start: 19960101
  6. PLAN B ONE-STEP [Suspect]
     Dosage: 1.5 MILLIGRAM;
     Route: 048
     Dates: start: 20120624, end: 20120624
  7. PLAN B ONE-STEP [Suspect]
     Indication: POST COITAL CONTRACEPTION
     Dosage: 1.5 MILLIGRAM;
     Route: 048
     Dates: start: 20120611, end: 20120611

REACTIONS (1)
  - MENSTRUATION IRREGULAR [None]
